FAERS Safety Report 9696853 (Version 1)
Quarter: 2013Q4

REPORT INFORMATION
  Report Type: Spontaneous
  Country: US (occurrence: US)
  Receive Date: 20131119
  Receipt Date: 20131119
  Transmission Date: 20140711
  Serious: Yes (Hospitalization)
  Sender: FDA-Public Use
  Company Number: US-GILEAD-2007-0013575

PATIENT
  Age: 72 Year
  Sex: Male

DRUGS (19)
  1. LETAIRIS [Suspect]
     Indication: PULMONARY ARTERIAL HYPERTENSION
     Route: 065
     Dates: start: 20070918, end: 20070919
  2. PLAVIX [Concomitant]
     Route: 065
  3. NORVASC [Concomitant]
     Route: 065
  4. DIAVAN [Concomitant]
     Route: 065
  5. ALBUTEROL [Concomitant]
     Route: 055
  6. XOPENEX [Concomitant]
     Route: 055
  7. SPIRIVA [Concomitant]
     Route: 065
  8. ADVAIR [Concomitant]
     Route: 065
  9. LIPITOR [Concomitant]
     Route: 065
  10. HYDROCHLOROT [Concomitant]
     Route: 065
  11. ZOLOFT [Concomitant]
     Indication: DEPRESSION
     Route: 065
  12. TRAZODONE [Concomitant]
     Route: 065
  13. OXYGEN [Concomitant]
     Route: 055
  14. VIAGRA [Concomitant]
     Route: 065
  15. OXYCODONE [Concomitant]
     Route: 065
  16. MULTIVITAMINS [Concomitant]
     Route: 065
  17. VITAMIN B COMPLEX [Concomitant]
     Route: 065
  18. OMEGA3 [Concomitant]
     Route: 065
  19. MELATONIN [Concomitant]
     Route: 065

REACTIONS (1)
  - Abdominal pain [Recovered/Resolved]
